FAERS Safety Report 9474959 (Version 1)
Quarter: 2013Q3

REPORT INFORMATION
  Report Type: Spontaneous
  Country: DE (occurrence: DE)
  Receive Date: 20130824
  Receipt Date: 20130824
  Transmission Date: 20140515
  Serious: Yes (Other)
  Sender: FDA-Public Use
  Company Number: DE-ROCHE-1265876

PATIENT
  Age: 5 Year
  Sex: Female

DRUGS (1)
  1. TOCILIZUMAB [Suspect]
     Indication: JUVENILE IDIOPATHIC ARTHRITIS
     Route: 065
     Dates: start: 201108

REACTIONS (1)
  - Eosinophilia [Unknown]
